FAERS Safety Report 9344949 (Version 2)
Quarter: 2013Q3

REPORT INFORMATION
  Report Type: Spontaneous
  Country: FR (occurrence: FR)
  Receive Date: 20130612
  Receipt Date: 20130812
  Transmission Date: 20140515
  Serious: Yes (Death, Hospitalization)
  Sender: FDA-Public Use
  Company Number: FR-TEVA-411423ISR

PATIENT
  Age: 87 Year
  Sex: Female

DRUGS (2)
  1. FUROSEMIDE TEVA 40 MG, COMPRIME SECABLE [Suspect]
     Dosage: 1 DOSAGE FORMS DAILY;
     Route: 048
     Dates: start: 20130521, end: 20130531
  2. PREVISCAN [Concomitant]
     Dosage: 1 DOSAGE FORMS DAILY;

REACTIONS (5)
  - Cardiac arrest [Fatal]
  - Shock [Fatal]
  - Renal failure [Fatal]
  - Dyspnoea [Unknown]
  - Incoherent [Unknown]
